FAERS Safety Report 15317117 (Version 11)
Quarter: 2021Q1

REPORT INFORMATION
  Report Type: Report from Study
  Country: DE (occurrence: DE)
  Receive Date: 20180824
  Receipt Date: 20210329
  Transmission Date: 20210419
  Serious: Yes (Hospitalization, Other)
  Sender: FDA-Public Use
  Company Number: DE-SA-2018SA021292

PATIENT
  Age: 49 Year
  Sex: Female
  Weight: 72.1 kg

DRUGS (11)
  1. ALEMTUZUMAB [Suspect]
     Active Substance: ALEMTUZUMAB
     Dosage: 12 MG
     Route: 041
     Dates: start: 20150706, end: 20150710
  2. PREGABALIN. [Concomitant]
     Active Substance: PREGABALIN
     Indication: DYSAESTHESIA
     Dosage: 50 MG
     Route: 048
     Dates: start: 20150407
  3. ALEMTUZUMAB [Suspect]
     Active Substance: ALEMTUZUMAB
     Indication: MULTIPLE SCLEROSIS
     Dosage: 12 MG
     Route: 041
     Dates: start: 20160719, end: 20160721
  4. ESCITALOPRAM [Concomitant]
     Active Substance: ESCITALOPRAM OXALATE
     Indication: ANXIETY DISORDER
     Dosage: 20 IU
     Route: 048
     Dates: start: 20121219
  5. EUTHYROX [Concomitant]
     Active Substance: LEVOTHYROXINE SODIUM
     Dosage: 50IU
     Route: 048
     Dates: start: 20090101
  6. FAMPYRA [Suspect]
     Active Substance: DALFAMPRIDINE
     Indication: GAIT DISTURBANCE
     Dosage: 10 MG
     Route: 048
     Dates: start: 20170911, end: 20171017
  7. METYPRED [METHYLPREDNISOLONE] [Concomitant]
     Active Substance: METHYLPREDNISOLONE
     Indication: MULTIPLE SCLEROSIS RELAPSE
     Dosage: 1000 MG
     Route: 042
     Dates: start: 20180423, end: 20180425
  8. PREGABALIN. [Concomitant]
     Active Substance: PREGABALIN
     Indication: DYSAESTHESIA
     Route: 048
     Dates: start: 20150407
  9. IBU [Concomitant]
     Active Substance: IBUPROFEN
     Dosage: 600 MG
     Route: 065
  10. EUTHYROX [Concomitant]
     Active Substance: LEVOTHYROXINE SODIUM
     Indication: HYPOTHYROIDISM
     Dosage: 50 IU
     Route: 048
     Dates: start: 20090101
  11. ESCITALOPRAM [Concomitant]
     Active Substance: ESCITALOPRAM OXALATE
     Indication: DEPRESSION
     Dosage: 20IU
     Route: 048
     Dates: start: 20121219

REACTIONS (10)
  - Back pain [Recovered/Resolved]
  - Pneumonia [Recovered/Resolved]
  - Influenza [Recovered/Resolved]
  - Influenza [Recovered/Resolved]
  - Arthralgia [Recovered/Resolved]
  - Urinary tract infection [Recovered/Resolved]
  - Contusion [Recovered/Resolved]
  - Fungal infection [Recovered/Resolved]
  - Arrhythmia [Recovered/Resolved]
  - Vulvovaginal mycotic infection [Recovered/Resolved]

NARRATIVE: CASE EVENT DATE: 20171013
